FAERS Safety Report 15356149 (Version 1)
Quarter: 2018Q3

REPORT INFORMATION
  Report Type: Spontaneous
  Country: US (occurrence: US)
  Receive Date: 20180906
  Receipt Date: 20180906
  Transmission Date: 20181010
  Serious: No
  Sender: FDA-Public Use
  Company Number: US-ASTRAZENECA-2018SF10025

PATIENT
  Age: 27668 Day
  Sex: Male
  Weight: 74.8 kg

DRUGS (2)
  1. DALIRESP [Suspect]
     Active Substance: ROFLUMILAST
     Indication: PNEUMONIA
     Route: 048
     Dates: start: 201802
  2. CLARAMYCIN [Concomitant]
     Indication: PNEUMONIA
     Dates: start: 201803

REACTIONS (6)
  - Product use in unapproved indication [Unknown]
  - Mucous stools [Not Recovered/Not Resolved]
  - Weight decreased [Not Recovered/Not Resolved]
  - Functional gastrointestinal disorder [Not Recovered/Not Resolved]
  - Dyspnoea [Not Recovered/Not Resolved]
  - Off label use [Unknown]

NARRATIVE: CASE EVENT DATE: 201806
